FAERS Safety Report 9958675 (Version 1)
Quarter: 2014Q1

REPORT INFORMATION
  Report Type: Spontaneous
  Country: US (occurrence: None)
  Receive Date: 20140227
  Receipt Date: 20140227
  Transmission Date: 20141002
  Serious: Yes (Other)
  Sender: FDA-Public Use
  Company Number: ADR-2012-02361

PATIENT
  Sex: Female

DRUGS (2)
  1. BACLOFEN INTRATHECAL [Suspect]
     Indication: POST LAMINECTOMY SYNDROME
  2. DILAUDID (HYDROMORPHONE) [Suspect]

REACTIONS (7)
  - Wrist fracture [None]
  - Constipation [None]
  - Fall [None]
  - Muscle spasms [None]
  - Gait disturbance [None]
  - Walking aid user [None]
  - Meningitis [None]
